FAERS Safety Report 24209564 (Version 1)
Quarter: 2024Q3

REPORT INFORMATION
  Report Type: Spontaneous
  Country: US (occurrence: None)
  Receive Date: 20240813
  Receipt Date: 20240813
  Transmission Date: 20241017
  Serious: Yes (Other)
  Sender: Public
  Company Number: None

PATIENT
  Sex: 0

DRUGS (1)
  1. CABOMETYX [Suspect]
     Active Substance: CABOZANTINIB S-MALATE
     Dates: start: 20240620

REACTIONS (7)
  - Pain of skin [None]
  - Vision blurred [None]
  - Balance disorder [None]
  - Genital pain [None]
  - Pain in extremity [None]
  - Pain in extremity [None]
  - Erythema [None]

NARRATIVE: CASE EVENT DATE: 20240810
